FAERS Safety Report 7334894-7 (Version None)
Quarter: 2011Q1

REPORT INFORMATION
  Report Type: 
  Country: None (occurrence: None)
  Receive Date: 20110307
  Receipt Date: 20110224
  Transmission Date: 20110831
  Serious: Yes (Hospitalization)
  Sender: FDA-Public Use
  Company Number: GB-JNJFOC-20110203623

PATIENT
  Age: 23 Year
  Sex: Male
  Weight: 56.4 kg

DRUGS (3)
  1. DARUNAVIR [Suspect]
     Indication: HIV INFECTION
     Route: 048
  2. RITONAVIR [Suspect]
     Indication: HIV INFECTION
     Route: 048
  3. RALTEGRAVIR [Suspect]
     Indication: HIV INFECTION
     Route: 048

REACTIONS (3)
  - MOUTH ULCERATION [None]
  - RASH PAPULAR [None]
  - PYREXIA [None]
